FAERS Safety Report 5503041-6 (Version None)
Quarter: 2007Q4

REPORT INFORMATION
  Report Type: 
  Country: None (occurrence: None)
  Receive Date: 20071029
  Receipt Date: 20071015
  Transmission Date: 20080405
  Serious: Yes (Other)
  Sender: FDA-Public Use
  Company Number: 2007SP019822

PATIENT
  Age: 36 Year
  Sex: Female
  Weight: 52.1637 kg

DRUGS (1)
  1. CLARITIN-D 24 HOUR [Suspect]
     Indication: SEASONAL ALLERGY
     Dosage: 1 DF; ONCE; PO
     Route: 048
     Dates: start: 20070924

REACTIONS (10)
  - AFFECT LABILITY [None]
  - AGITATION [None]
  - ANOREXIA [None]
  - ANXIETY [None]
  - ASTHENOPIA [None]
  - CRYING [None]
  - DEPRESSION [None]
  - PALPITATIONS [None]
  - PHARMACEUTICAL PRODUCT COMPLAINT [None]
  - SUICIDAL IDEATION [None]
